FAERS Safety Report 8995493 (Version 1)
Quarter: 2013Q1

REPORT INFORMATION
  Report Type: Spontaneous
  Country: US (occurrence: US)
  Receive Date: 20130103
  Receipt Date: 20130103
  Transmission Date: 20140127
  Serious: No
  Sender: FDA-Public Use
  Company Number: US-ABBOTT-12P-163-0903891-00

PATIENT
  Age: 50 Year
  Sex: Female

DRUGS (5)
  1. SYNTHROID [Suspect]
     Indication: AUTOIMMUNE THYROIDITIS
     Route: 048
  2. SYNTHROID [Suspect]
  3. DIVIGEL [Suspect]
     Indication: MENOPAUSAL SYMPTOMS
     Route: 061
     Dates: start: 201112, end: 201112
  4. DIVIGEL [Suspect]
     Dosage: 1/2 PACKET
     Route: 061
     Dates: start: 201112, end: 20120206
  5. MULTIPLE UNSPECIFIED SUPPLEMENTS [Concomitant]
     Indication: PRODUCT USED FOR UNKNOWN INDICATION

REACTIONS (3)
  - Blood thyroid stimulating hormone increased [Unknown]
  - Thyroid disorder [Not Recovered/Not Resolved]
  - Palpitations [Not Recovered/Not Resolved]
